FAERS Safety Report 7347995-4 (Version None)
Quarter: 2011Q1

REPORT INFORMATION
  Report Type: 
  Country: None (occurrence: None)
  Receive Date: 20110311
  Receipt Date: 20110302
  Transmission Date: 20110831
  Serious: Yes (Hospitalization)
  Sender: FDA-Public Use
  Company Number: PHHO2011AU03581

PATIENT

DRUGS (5)
  1. CALTRATE +D [Concomitant]
  2. LETROZOLE [Suspect]
     Indication: BREAST CANCER
     Dosage: 2.5 MG, QD
     Route: 048
     Dates: start: 20100830
  3. PANADEINE FORTE [Concomitant]
  4. SYMBICORT [Concomitant]
  5. COLOXYL WITH SENNA [Concomitant]

REACTIONS (3)
  - CHEST PAIN [None]
  - RIB FRACTURE [None]
  - FALL [None]
